FAERS Safety Report 13517097 (Version 1)
Quarter: 2017Q2

REPORT INFORMATION
  Report Type: Spontaneous
  Country: US (occurrence: US)
  Receive Date: 20170505
  Receipt Date: 20170505
  Transmission Date: 20170830
  Serious: Yes (Hospitalization)
  Sender: FDA-Public Use
  Company Number: None

PATIENT
  Age: 90 Year
  Sex: Female
  Weight: 120 kg

DRUGS (10)
  1. SYSTANE (HYPROMELLOSE 2910 (4000 MPA.S)) [Concomitant]
     Active Substance: HYPROMELLOSE 2910 (4000 MPA.S)
  2. ASA [Suspect]
     Active Substance: ASPIRIN
     Indication: ATRIAL FIBRILLATION
     Dosage: DATES OF USE - CHRONIC
     Route: 048
  3. CELEBREX [Suspect]
     Active Substance: CELECOXIB
     Indication: LYMPHOEDEMA
     Dosage: DATES OF USE - RECENT
     Route: 048
  4. AMOXIL [Concomitant]
     Active Substance: AMOXICILLIN
  5. APEXICON [Suspect]
     Active Substance: DIFLORASONE DIACETATE
  6. CENTRUM COMPLETE [Concomitant]
  7. MICOTIN [Concomitant]
  8. CA CARBONATE [Concomitant]
  9. HYZAAR [Concomitant]
     Active Substance: HYDROCHLOROTHIAZIDE\LOSARTAN POTASSIUM
  10. RECLAST [Concomitant]
     Active Substance: ZOLEDRONIC ACID

REACTIONS (2)
  - Iron deficiency anaemia [None]
  - Diverticulum intestinal haemorrhagic [None]

NARRATIVE: CASE EVENT DATE: 20161226
